FAERS Safety Report 17702467 (Version 3)
Quarter: 2020Q2

REPORT INFORMATION
  Report Type: Spontaneous
  Country: US (occurrence: US)
  Receive Date: 20200424
  Receipt Date: 20200601
  Transmission Date: 20200714
  Serious: No
  Sender: FDA-Public Use
  Company Number: US-SHIRE-US202014301

PATIENT
  Age: 47 Year
  Sex: Female
  Weight: 52.61 kg

DRUGS (5)
  1. CUVITRU [Suspect]
     Active Substance: HUMAN IMMUNOGLOBULIN G
     Dosage: 14 GRAM, 1X/2WKS
     Route: 058
     Dates: start: 20200501
  2. CUVITRU [Suspect]
     Active Substance: HUMAN IMMUNOGLOBULIN G
     Dosage: 7 GRAM, 1X/WEEK
     Route: 058
  3. CUVITRU [Suspect]
     Active Substance: HUMAN IMMUNOGLOBULIN G
     Indication: IMMUNODEFICIENCY COMMON VARIABLE
     Dosage: 14 GRAM, 1X/2WKS
     Route: 058
     Dates: start: 20200501
  4. CUVITRU [Suspect]
     Active Substance: HUMAN IMMUNOGLOBULIN G
     Dosage: 14 GRAM, 1X/2WKS
     Route: 058
     Dates: start: 20200419
  5. CUVITRU [Suspect]
     Active Substance: HUMAN IMMUNOGLOBULIN G
     Dosage: 14 GRAM, 1X/2WKS
     Route: 058
     Dates: start: 20200419

REACTIONS (6)
  - Abdominal discomfort [Unknown]
  - Erythema [Unknown]
  - Influenza like illness [Recovering/Resolving]
  - Headache [Recovering/Resolving]
  - Hereditary angioedema [Unknown]
  - Feeling hot [Unknown]

NARRATIVE: CASE EVENT DATE: 20200420
